FAERS Safety Report 6066159-8 (Version None)
Quarter: 2009Q1

REPORT INFORMATION
  Report Type: 
  Country: None (occurrence: None)
  Receive Date: 20090203
  Receipt Date: 20090121
  Transmission Date: 20090719
  Serious: Yes (Other)
  Sender: FDA-Public Use
  Company Number: 235332J08USA

PATIENT
  Age: 44 Year
  Sex: Female

DRUGS (3)
  1. REBIF [Suspect]
     Indication: MULTIPLE SCLEROSIS
     Dosage: 44 MCG, 3 IN 1 WEEKS, SUBCUTANEOUS, 44 MCG, 3 IN 1 WEEKS, SUBCUTANEOUS, 8.8 MCG, 3 IN 1 WEEKS, SUBCU
     Route: 058
     Dates: start: 20050331, end: 20070117
  2. REBIF [Suspect]
     Indication: MULTIPLE SCLEROSIS
     Dosage: 44 MCG, 3 IN 1 WEEKS, SUBCUTANEOUS, 44 MCG, 3 IN 1 WEEKS, SUBCUTANEOUS, 8.8 MCG, 3 IN 1 WEEKS, SUBCU
     Route: 058
     Dates: start: 20070620, end: 20070720
  3. REBIF [Suspect]
     Indication: MULTIPLE SCLEROSIS
     Dosage: 44 MCG, 3 IN 1 WEEKS, SUBCUTANEOUS, 44 MCG, 3 IN 1 WEEKS, SUBCUTANEOUS, 8.8 MCG, 3 IN 1 WEEKS, SUBCU
     Route: 058
     Dates: start: 20080604

REACTIONS (2)
  - PILONIDAL CYST [None]
  - SURGICAL PROCEDURE REPEATED [None]
